FAERS Safety Report 6188170-9 (Version None)
Quarter: 2009Q2

REPORT INFORMATION
  Report Type: 
  Country: None (occurrence: None)
  Receive Date: 20090513
  Receipt Date: 20090507
  Transmission Date: 20091009
  Serious: Yes (Life-Threatening, Other)
  Sender: FDA-Public Use
  Company Number: JP-ASTRAZENECA-2009AP01306

PATIENT
  Age: 70 Year
  Sex: Male

DRUGS (7)
  1. MEROPEN [Suspect]
     Indication: BRAIN ABSCESS
     Route: 041
     Dates: end: 20081201
  2. RIMATIL [Concomitant]
     Route: 048
  3. BUP-4 [Concomitant]
     Route: 048
  4. GASTER [Concomitant]
  5. DEPAS [Concomitant]
     Route: 048
  6. FIRSTCIN [Concomitant]
     Dosage: USED FOR MORE THAN 2 WEEKS PRIOR TO STARTING MEROPEN
  7. ALEVIATIN [Concomitant]
     Indication: EPILEPSY
     Dates: start: 20081020

REACTIONS (3)
  - EVANS SYNDROME [None]
  - HAEMOLYTIC ANAEMIA [None]
  - PLATELET COUNT DECREASED [None]
